FAERS Safety Report 21924508 (Version 2)
Quarter: 2023Q1

REPORT INFORMATION
  Report Type: Spontaneous
  Country: BR (occurrence: BR)
  Receive Date: 20230130
  Receipt Date: 20230207
  Transmission Date: 20230417
  Serious: No
  Sender: FDA-Public Use
  Company Number: BR-002147023-NVSC2023BR018027

PATIENT
  Sex: Male
  Weight: 75 kg

DRUGS (6)
  1. BRINZOLAMIDE\TIMOLOL MALEATE [Suspect]
     Active Substance: BRINZOLAMIDE\TIMOLOL MALEATE
     Indication: Cataract
     Dosage: 1 DRP, Q12H (IN EACH EYE) (START DATE: MANY YEARS AGO)
     Route: 047
  2. BRINZOLAMIDE\TIMOLOL MALEATE [Suspect]
     Active Substance: BRINZOLAMIDE\TIMOLOL MALEATE
     Indication: Glaucoma
  3. PREDNISOLONE ACETATE [Concomitant]
     Active Substance: PREDNISOLONE ACETATE
     Indication: Cataract
     Dosage: 1 DRP, Q12H (IN EACH EYE) (START DATE: MANY YEARS AGO)
     Route: 047
  4. PREDNISOLONE ACETATE [Concomitant]
     Active Substance: PREDNISOLONE ACETATE
     Indication: Glaucoma
  5. ATROPINE [Concomitant]
     Active Substance: ATROPINE
     Indication: Cataract
     Dosage: 1 DRP, Q12H (IN EACH EYE) (START DATE: MANY YEARS AGO)
     Route: 047
  6. ATROPINE [Concomitant]
     Active Substance: ATROPINE
     Indication: Glaucoma

REACTIONS (1)
  - Product use in unapproved indication [Not Recovered/Not Resolved]
